FAERS Safety Report 24531620 (Version 1)
Quarter: 2024Q4

REPORT INFORMATION
  Report Type: Report from Study
  Country: CA (occurrence: CA)
  Receive Date: 20241022
  Receipt Date: 20241022
  Transmission Date: 20250114
  Serious: No
  Sender: ROCHE
  Company Number: CA-ROCHE-3442938

PATIENT
  Age: 27 Year
  Sex: Female

DRUGS (1)
  1. PULMOZYME [Suspect]
     Active Substance: DORNASE ALFA
     Indication: Cystic fibrosis
     Dosage: PRESCRIBED AS 2.5MG DAILY BUT TAKING IRREGULARLY
     Route: 055
     Dates: start: 20190815

REACTIONS (2)
  - Intentional product misuse [Unknown]
  - No adverse event [Unknown]
